FAERS Safety Report 13774916 (Version 1)
Quarter: 2017Q3

REPORT INFORMATION
  Report Type: Report from Study
  Country: PK (occurrence: PK)
  Receive Date: 20170720
  Receipt Date: 20170720
  Transmission Date: 20171127
  Serious: Yes (Other)
  Sender: FDA-Public Use
  Company Number: PHHY2017PK104175

PATIENT
  Age: 52 Year
  Sex: Female
  Weight: 120 kg

DRUGS (3)
  1. GLIVEC [Suspect]
     Active Substance: IMATINIB MESYLATE
     Dosage: 200 MG, QD
     Route: 048
     Dates: start: 20170712
  2. PREDNISOLON [Concomitant]
     Active Substance: PREDNISOLONE
     Indication: PRODUCT USED FOR UNKNOWN INDICATION
     Route: 065
  3. GLIVEC [Suspect]
     Active Substance: IMATINIB MESYLATE
     Indication: CHRONIC MYELOID LEUKAEMIA
     Dosage: 400 MG, QD
     Route: 048
     Dates: start: 20170102

REACTIONS (10)
  - Platelet count decreased [Not Recovered/Not Resolved]
  - Infection [Unknown]
  - Haemoglobin decreased [Not Recovered/Not Resolved]
  - Anaemia [Unknown]
  - White blood cell count decreased [Not Recovered/Not Resolved]
  - Thrombocytopenia [Unknown]
  - Pyrexia [Unknown]
  - Dyspnoea [Unknown]
  - Leukopenia [Unknown]
  - Fatigue [Unknown]

NARRATIVE: CASE EVENT DATE: 20170712
